FAERS Safety Report 23807668 (Version 1)
Quarter: 2024Q2

REPORT INFORMATION
  Report Type: Spontaneous
  Country: CA (occurrence: CA)
  Receive Date: 20240502
  Receipt Date: 20240502
  Transmission Date: 20240716
  Serious: Yes (Other)
  Sender: FDA-Public Use
  Company Number: CA-CHEPLA-2024005286

PATIENT
  Age: 48 Year
  Sex: Male

DRUGS (24)
  1. HYDROXYUREA [Suspect]
     Active Substance: HYDROXYUREA
  2. ALLOPURINOL [Suspect]
     Active Substance: ALLOPURINOL
  3. AMOXICILLIN\CLAVULANATE POTASSIUM [Suspect]
     Active Substance: AMOXICILLIN\CLAVULANATE POTASSIUM
  4. BISACODYL [Suspect]
     Active Substance: BISACODYL
  5. CHOLECALCIFEROL [Suspect]
     Active Substance: CHOLECALCIFEROL
  6. CIPROFLOXACIN HYDROCHLORIDE\DEXAMETHASONE [Suspect]
     Active Substance: CIPROFLOXACIN HYDROCHLORIDE\DEXAMETHASONE
  7. CRESEMBA [Suspect]
     Active Substance: ISAVUCONAZONIUM SULFATE
  8. DIPHENHYDRAMINE [Suspect]
     Active Substance: DIPHENHYDRAMINE
  9. FAMCICLOVIR [Suspect]
     Active Substance: FAMCICLOVIR
  10. FUROSEMIDE [Suspect]
     Active Substance: FUROSEMIDE
  11. HYDROMORPHONE [Suspect]
     Active Substance: HYDROMORPHONE
  12. LACTULOSE [Suspect]
     Active Substance: LACTULOSE
  13. LIDOCAINE [Suspect]
     Active Substance: LIDOCAINE
  14. LORAZEPAM [Suspect]
     Active Substance: LORAZEPAM
  15. MAGNESIUM GLUCEPTATE [Suspect]
     Active Substance: MAGNESIUM GLUCEPTATE
  16. METOPROLOL [Suspect]
     Active Substance: METOPROLOL
  17. MINERAL OIL [Suspect]
     Active Substance: MINERAL OIL
     Dosage: LIQUID ORAL
  18. NYSTATIN [Suspect]
     Active Substance: NYSTATIN
  19. PANTOPRAZOLE SODIUM ANHYDROUS [Suspect]
     Active Substance: PANTOPRAZOLE SODIUM ANHYDROUS
  20. PENTAMIDINE ISETHIONATE [Suspect]
     Active Substance: PENTAMIDINE ISETHIONATE
     Dosage: INJ 300MG/VIAL BP. DOSAGE FORM: POWDER FOR SOLUTION INTRAMUSCULAR
  21. POLYETHYLENE GLYCOL [Suspect]
     Active Substance: POLYETHYLENE GLYCOL
  22. POTASSIUM [Suspect]
     Active Substance: POTASSIUM
  23. RAMIPRIL [Suspect]
     Active Substance: RAMIPRIL
  24. SENNOSIDES [Suspect]
     Active Substance: SENNOSIDES

REACTIONS (1)
  - Febrile neutropenia [Unknown]
